FAERS Safety Report 4977957-3 (Version None)
Quarter: 2006Q2

REPORT INFORMATION
  Report Type: 
  Country: None (occurrence: None)
  Receive Date: 20060420
  Receipt Date: 20060417
  Transmission Date: 20061013
  Serious: Yes (Hospitalization)
  Sender: FDA-Public Use
  Company Number: US-MERCK-0604USA02853

PATIENT
  Age: 65 Year
  Sex: Female
  Weight: 91 kg

DRUGS (9)
  1. VIOXX [Suspect]
     Indication: ARTHRITIS
     Route: 048
     Dates: start: 20030101, end: 20040507
  2. DIOVAN [Concomitant]
     Route: 065
  3. LASIX [Concomitant]
     Route: 065
  4. POTASSIUM (UNSPECIFIED) [Concomitant]
     Route: 065
  5. LOPRESSOR [Concomitant]
     Route: 065
  6. LIPITOR [Concomitant]
     Route: 065
  7. ZOLOFT [Concomitant]
     Route: 065
  8. ALDOMET [Concomitant]
     Route: 065
  9. ASPIRIN [Concomitant]
     Route: 065

REACTIONS (1)
  - CEREBROVASCULAR ACCIDENT [None]
